FAERS Safety Report 12842479 (Version 2)
Quarter: 2017Q3

REPORT INFORMATION
  Report Type: Spontaneous
  Country: FR (occurrence: FR)
  Receive Date: 20161013
  Receipt Date: 20170711
  Transmission Date: 20171127
  Serious: Yes (Other)
  Sender: FDA-Public Use
  Company Number: FR-ROCHE-1841437

PATIENT
  Age: 83 Year
  Sex: Male

DRUGS (9)
  1. MABTHERA [Suspect]
     Active Substance: RITUXIMAB
     Indication: HAEMATOLOGICAL MALIGNANCY
     Dosage: C1D1
     Route: 042
     Dates: end: 20160921
  2. XARELTO [Concomitant]
     Active Substance: RIVAROXABAN
  3. PRAVASTATIN. [Concomitant]
     Active Substance: PRAVASTATIN
  4. BACTRIM [Concomitant]
     Active Substance: SULFAMETHOXAZOLE\TRIMETHOPRIM
  5. STILNOX [Concomitant]
     Active Substance: ZOLPIDEM TARTRATE
  6. ZOPHREN [Concomitant]
     Active Substance: ONDANSETRON
  7. ZELITREX [Concomitant]
     Active Substance: VALACYCLOVIR HYDROCHLORIDE
  8. LANTUS [Concomitant]
     Active Substance: INSULIN GLARGINE
  9. LEVACT (FRANCE) [Suspect]
     Active Substance: BENDAMUSTINE HYDROCHLORIDE
     Indication: HAEMATOLOGICAL MALIGNANCY
     Dosage: C1D1 AND C1D2
     Route: 042
     Dates: end: 20160921

REACTIONS (2)
  - Myoclonus [Recovered/Resolved]
  - Malaise [Recovered/Resolved]

NARRATIVE: CASE EVENT DATE: 20160921
